FAERS Safety Report 5087548-4 (Version None)
Quarter: 2006Q3

REPORT INFORMATION
  Report Type: 
  Country: None (occurrence: None)
  Receive Date: 20060824
  Receipt Date: 20060817
  Transmission Date: 20061208
  Serious: Yes (Hospitalization)
  Sender: FDA-Public Use
  Company Number: 2006EN000129

PATIENT
  Age: 19 Year
  Sex: Female
  Weight: 52 kg

DRUGS (12)
  1. ZOVIRAX [Suspect]
     Indication: DRUG USE FOR UNKNOWN INDICATION
     Dosage: 380MG UNKNOWN
     Route: 042
     Dates: start: 20060422, end: 20060805
  2. PEGASPARGASE [Suspect]
     Indication: B-CELL TYPE ACUTE LEUKAEMIA
     Dosage: 2500IU UNKNOWN
     Route: 042
     Dates: start: 20060424, end: 20060424
  3. FLAGYL I.V. [Suspect]
     Indication: DRUG USE FOR UNKNOWN INDICATION
     Dosage: 500MG UNKNOWN
     Route: 065
     Dates: start: 20060422, end: 20060430
  4. AMIKLIN [Concomitant]
     Dates: start: 20060419, end: 20060427
  5. CLAVENTIN [Concomitant]
     Dates: start: 20060418, end: 20060506
  6. VANCOCIN [Concomitant]
     Dates: start: 20060420, end: 20060503
  7. BACTRIM [Concomitant]
     Dates: start: 20060413, end: 20060428
  8. PLITICAN [Concomitant]
  9. AMBISOME [Concomitant]
     Dates: end: 20060502
  10. SPASFON [Concomitant]
  11. ZOPHREN [Concomitant]
  12. ACETAMINOPHEN [Concomitant]

REACTIONS (8)
  - ABDOMINAL PAIN [None]
  - APLASIA [None]
  - BLOOD AMYLASE INCREASED [None]
  - LIPASE INCREASED [None]
  - MUCOSAL INFLAMMATION [None]
  - PANCREATITIS [None]
  - RECTAL HAEMORRHAGE [None]
  - VOMITING [None]
